FAERS Safety Report 16581027 (Version 1)
Quarter: 2019Q3

REPORT INFORMATION
  Report Type: Spontaneous
  Country: IT (occurrence: IT)
  Receive Date: 20190716
  Receipt Date: 20190716
  Transmission Date: 20191004
  Serious: Yes (Hospitalization, Other)
  Sender: FDA-Public Use
  Company Number: IT-SA-2019SA185892

PATIENT
  Age: 78 Year
  Sex: Female

DRUGS (6)
  1. CARDIOASPIRIN [Concomitant]
     Active Substance: ASPIRIN
     Dosage: UNK
  2. NORVASC [Concomitant]
     Active Substance: AMLODIPINE BESYLATE
     Dosage: UNK
  3. RYTMONORM [Concomitant]
     Active Substance: PROPAFENONE
     Dosage: UNK
  4. MEPRAL [OMEPRAZOLE] [Concomitant]
     Dosage: UNK
  5. STILNOX [Suspect]
     Active Substance: ZOLPIDEM TARTRATE
     Indication: DEPRESSION
     Dosage: 5 MG, QD
     Route: 048
     Dates: start: 20060510, end: 20190618
  6. BLOPRESS [Concomitant]
     Active Substance: CANDESARTAN CILEXETIL
     Dosage: UNK

REACTIONS (6)
  - Drug dependence [Unknown]
  - Hypoacusis [Recovered/Resolved]
  - Hypotonia [Recovered/Resolved]
  - Fall [Recovered/Resolved]
  - Confusional state [Recovered/Resolved]
  - Loss of consciousness [Recovered/Resolved]

NARRATIVE: CASE EVENT DATE: 20190526
